FAERS Safety Report 14809397 (Version 1)
Quarter: 2018Q2

REPORT INFORMATION
  Report Type: Report from Study
  Country: US (occurrence: US)
  Receive Date: 20180425
  Receipt Date: 20180425
  Transmission Date: 20180711
  Serious: No
  Sender: FDA-Public Use
  Company Number: US-AMGEN-USASL2018021396

PATIENT
  Age: 59 Year
  Sex: Male

DRUGS (2)
  1. REPATHA [Suspect]
     Active Substance: EVOLOCUMAB
     Indication: HYPERCHOLESTEROLAEMIA
     Dosage: 140 MG, Q2WK
     Route: 065
  2. REPATHA [Suspect]
     Active Substance: EVOLOCUMAB
     Indication: BLOOD CHOLESTEROL INCREASED

REACTIONS (12)
  - Weight decreased [Unknown]
  - Rhinorrhoea [Unknown]
  - Blood creatine increased [Unknown]
  - Tenderness [Unknown]
  - Muscle spasms [Recovered/Resolved]
  - Oropharyngeal pain [Unknown]
  - Myalgia [Unknown]
  - Injection site pain [Unknown]
  - Pain in extremity [Recovered/Resolved]
  - Blood glucose increased [Recovered/Resolved]
  - Wrong technique in product usage process [Unknown]
  - Back pain [Recovered/Resolved]
